FAERS Safety Report 18731941 (Version 1)
Quarter: 2021Q1

REPORT INFORMATION
  Report Type: Spontaneous
  Country: FR (occurrence: FR)
  Receive Date: 20210112
  Receipt Date: 20210112
  Transmission Date: 20210419
  Serious: Yes (Other)
  Sender: FDA-Public Use
  Company Number: FR-PFIZER INC-2021009202

PATIENT
  Age: 50 Year
  Sex: Male

DRUGS (2)
  1. ALPRAZOLAM. [Suspect]
     Active Substance: ALPRAZOLAM
     Dosage: UP TO 10 DF DAILY
  2. PREGABALINE PFIZER [Suspect]
     Active Substance: PREGABALIN
     Dosage: UP TO 25 TABLETS OF 150 MG DAILY

REACTIONS (3)
  - Withdrawal syndrome [Recovered/Resolved]
  - Overdose [Unknown]
  - Drug dependence [Not Recovered/Not Resolved]
